FAERS Safety Report 6715202-9 (Version None)
Quarter: 2010Q2

REPORT INFORMATION
  Report Type: 
  Country: None (occurrence: None)
  Receive Date: 20100507
  Receipt Date: 20100428
  Transmission Date: 20101027
  Serious: Yes (Hospitalization, Other)
  Sender: FDA-Public Use
  Company Number: US-ABBOTT-10P-163-0641642-00

PATIENT
  Sex: Female
  Weight: 72.64 kg

DRUGS (3)
  1. ZEMPLAR [Suspect]
     Indication: RENAL FAILURE
     Dosage: ALTERNATES 1 PILL WITH 2 PILLS QOD
     Route: 048
     Dates: start: 20080101, end: 20100301
  2. ZEMPLAR [Suspect]
     Dosage: ALTERNATES 1 PILL WITH 2 PILLS QOD
     Route: 048
     Dates: start: 20100301
  3. VITAMIN D [Concomitant]
     Indication: VITAMIN SUPPLEMENTATION

REACTIONS (3)
  - ABDOMINAL HERNIA [None]
  - ABDOMINAL PAIN [None]
  - SINUS DISORDER [None]
